FAERS Safety Report 16288098 (Version 1)
Quarter: 2019Q2

REPORT INFORMATION
  Report Type: Spontaneous
  Country: US (occurrence: US)
  Receive Date: 20190508
  Receipt Date: 20190508
  Transmission Date: 20190711
  Serious: No
  Sender: FDA-Public Use
  Company Number: US-009507513-1905USA002743

PATIENT
  Age: 81 Year
  Sex: Female

DRUGS (3)
  1. SINEMET CR [Suspect]
     Active Substance: CARBIDOPA\LEVODOPA
     Indication: PARKINSON^S DISEASE
     Dosage: 1 TABLET, TWICE A DAY
     Route: 048
     Dates: start: 20190419
  2. SINEMET [Suspect]
     Active Substance: CARBIDOPA\LEVODOPA
     Dosage: STRENGTH: 25-100 (UNITS NOT PROVIDED)
     Route: 048
     Dates: end: 201904
  3. SINEMET [Suspect]
     Active Substance: CARBIDOPA\LEVODOPA
     Dosage: UNK
     Route: 048
     Dates: start: 201808

REACTIONS (3)
  - Therapeutic product effect incomplete [Unknown]
  - Product availability issue [Unknown]
  - Oedema [Recovering/Resolving]

NARRATIVE: CASE EVENT DATE: 20190419
